FAERS Safety Report 16012824 (Version 1)
Quarter: 2019Q1

REPORT INFORMATION
  Report Type: Spontaneous
  Country: US (occurrence: US)
  Receive Date: 20190227
  Receipt Date: 20190227
  Transmission Date: 20190418
  Serious: Yes (Disabling, Other)
  Sender: FDA-Public Use
  Company Number: None

PATIENT
  Age: 3 Year
  Sex: Male
  Weight: 13.4 kg

DRUGS (1)
  1. VALPROIC ACID. [Suspect]
     Active Substance: VALPROIC ACID
     Indication: EPILEPSY
     Dates: start: 20180418, end: 20190124

REACTIONS (4)
  - Weight decreased [None]
  - Skin discolouration [None]
  - Thrombocytopenia [None]
  - Dark circles under eyes [None]

NARRATIVE: CASE EVENT DATE: 20181019
